FAERS Safety Report 14708200 (Version 1)
Quarter: 2018Q1

REPORT INFORMATION
  Report Type: Spontaneous
  Country: US (occurrence: US)
  Receive Date: 20180329
  Receipt Date: 20180329
  Transmission Date: 20180509
  Serious: Yes (Life-Threatening)
  Sender: FDA-Public Use
  Company Number: None

PATIENT
  Age: 77 Year
  Sex: Male

DRUGS (1)
  1. PENICILLIN [Suspect]
     Active Substance: PENICILLIN
     Indication: ENDOCARDITIS
     Dates: start: 20180322, end: 20180323

REACTIONS (2)
  - Angioedema [None]
  - Trichoglossia [None]

NARRATIVE: CASE EVENT DATE: 20180323
